FAERS Safety Report 24364071 (Version 1)
Quarter: 2024Q3

REPORT INFORMATION
  Report Type: Spontaneous
  Country: US (occurrence: US)
  Receive Date: 20240925
  Receipt Date: 20240925
  Transmission Date: 20241016
  Serious: Yes (Other)
  Sender: MALLINCKRODT
  Company Number: US-MALLINCKRODT-MNK202405286

PATIENT
  Sex: Female

DRUGS (2)
  1. CORTICOTROPIN [Suspect]
     Active Substance: CORTICOTROPIN
     Indication: Multiple sclerosis
     Route: 058
     Dates: start: 202408
  2. KESIMPTA [Concomitant]
     Active Substance: OFATUMUMAB
     Dosage: UNKNOWN

REACTIONS (6)
  - Multiple sclerosis relapse [Not Recovered/Not Resolved]
  - Tachycardia [Unknown]
  - Dysphagia [Unknown]
  - Migraine [Unknown]
  - Pain in extremity [Unknown]
  - Peripheral swelling [Unknown]

NARRATIVE: CASE EVENT DATE: 20240101
